APPROVED DRUG PRODUCT: YARGESA
Active Ingredient: MIGLUSTAT
Strength: 100MG
Dosage Form/Route: CAPSULE;ORAL
Application: A209821 | Product #001 | TE Code: AB
Applicant: EDENBRIDGE PHARMACEUTICALS LLC
Approved: Aug 6, 2020 | RLD: No | RS: No | Type: RX